FAERS Safety Report 23795129 (Version 1)
Quarter: 2024Q2

REPORT INFORMATION
  Report Type: Spontaneous
  Country: FR (occurrence: FR)
  Receive Date: 20240429
  Receipt Date: 20240429
  Transmission Date: 20240716
  Serious: Yes (Other)
  Sender: FDA-Public Use
  Company Number: None

PATIENT
  Age: 23 Year
  Sex: Female

DRUGS (2)
  1. VENLAFAXINE [Suspect]
     Active Substance: VENLAFAXINE HYDROCHLORIDE
     Indication: Wrong patient received product
     Dosage: TIME INTERVAL: TOTAL: VENLAFAXINE TEVA LP
     Route: 048
     Dates: start: 20240303, end: 20240303
  2. LORAZEPAM [Suspect]
     Active Substance: LORAZEPAM
     Indication: Wrong patient received product
     Dosage: TIME INTERVAL: TOTAL: SCORED TABLET
     Route: 048
     Dates: start: 20240302, end: 20240303

REACTIONS (6)
  - Gait disturbance [Recovered/Resolved]
  - Hallucination, visual [Recovered/Resolved]
  - Product dispensing error [Recovered/Resolved]
  - Asthenia [Recovered/Resolved]
  - Wrong patient [Recovered/Resolved]
  - Product administration error [Recovered/Resolved]

NARRATIVE: CASE EVENT DATE: 20240303
